FAERS Safety Report 8844045 (Version 1)
Quarter: 2012Q4

REPORT INFORMATION
  Report Type: 
  Country: US (occurrence: US)
  Receive Date: 20121016
  Receipt Date: 20121016
  Transmission Date: 20130627
  Serious: Yes (Other)
  Sender: FDA-Public Use
  Company Number: US-PFIZER INC-2012254229

PATIENT

DRUGS (1)
  1. DEPO-MEDROL [Suspect]
     Dosage: 1cc

REACTIONS (2)
  - Osteonecrosis [Unknown]
  - Infection [Unknown]
